FAERS Safety Report 13820096 (Version 1)
Quarter: 2017Q3

REPORT INFORMATION
  Report Type: Spontaneous
  Country: IL (occurrence: IL)
  Receive Date: 20170801
  Receipt Date: 20170801
  Transmission Date: 20171127
  Serious: Yes (Other)
  Sender: FDA-Public Use
  Company Number: IL-BAUSCH-BL-2017-022801

PATIENT
  Age: 17 Year
  Sex: Male

DRUGS (1)
  1. MINOCYCLINE [Suspect]
     Active Substance: MINOCYCLINE\MINOCYCLINE HYDROCHLORIDE
     Indication: ACNE
     Dosage: 50 TO 100 MG
     Route: 065

REACTIONS (7)
  - Hepatitis chronic active [Recovered/Resolved]
  - Autoimmune disorder [Recovered/Resolved]
  - Antineutrophil cytoplasmic antibody increased [Recovered/Resolved]
  - Arthritis [Recovered/Resolved]
  - Arthralgia [Recovered/Resolved]
  - Skin mass [Recovered/Resolved]
  - Prothrombin time prolonged [Recovered/Resolved]
